FAERS Safety Report 18922442 (Version 1)
Quarter: 2021Q1

REPORT INFORMATION
  Report Type: Other
  Country: US (occurrence: US)
  Receive Date: 20210222
  Receipt Date: 20210222
  Transmission Date: 20210420
  Serious: Yes (Other)
  Sender: FDA-Public Use
  Company Number: US-ROCHE-2562434

PATIENT
  Age: 48 Year
  Sex: Female

DRUGS (4)
  1. OMEPRAZOLE. [Concomitant]
     Active Substance: OMEPRAZOLE
     Indication: GASTROOESOPHAGEAL REFLUX DISEASE
  2. OCREVUS [Suspect]
     Active Substance: OCRELIZUMAB
     Indication: RELAPSING-REMITTING MULTIPLE SCLEROSIS
     Dosage: DOSE: 300 MG ON DAY 1 AND DAY 15 AND THEN 600 MG EVERY 6 MONTHS?DATE OF TREATMENT: 26/JUL/2018, 05/F
     Route: 065
     Dates: start: 20180711
  3. EFFEXOR [Concomitant]
     Active Substance: VENLAFAXINE HYDROCHLORIDE
     Indication: DEPRESSION
  4. METFORMIN [Concomitant]
     Active Substance: METFORMIN HYDROCHLORIDE
     Indication: GLUCOSE TOLERANCE IMPAIRED
     Dosage: ONGOING UNKNOWN, TWO 500 MG PILLS ONCE A DAY

REACTIONS (10)
  - Cervix disorder [Not Recovered/Not Resolved]
  - Uterine cervical pain [Not Recovered/Not Resolved]
  - Uterine disorder [Unknown]
  - Headache [Unknown]
  - Diverticulitis [Unknown]
  - Pain [Not Recovered/Not Resolved]
  - Therapeutic response shortened [Unknown]
  - Fatigue [Recovering/Resolving]
  - Mood altered [Unknown]
  - Alopecia [Not Recovered/Not Resolved]

NARRATIVE: CASE EVENT DATE: 202101
